FAERS Safety Report 8587167-9 (Version None)
Quarter: 2012Q3

REPORT INFORMATION
  Report Type: 
  Country: None (occurrence: None)
  Receive Date: 20120810
  Receipt Date: 20120731
  Transmission Date: 20120928
  Serious: No
  Sender: FDA-Public Use
  Company Number: US-ASTRAZENECA-2012SE53515

PATIENT
  Age: 73 Year
  Sex: Female
  Weight: 70.8 kg

DRUGS (9)
  1. BENZOCAR [Concomitant]
     Indication: HYPERTENSION
  2. ACIPHEX [Suspect]
     Route: 065
  3. VERAPAMIL [Concomitant]
     Indication: HYPERTENSION
  4. JANUVIA [Concomitant]
     Indication: DIABETES MELLITUS
  5. NEXIUM [Suspect]
     Indication: GASTROOESOPHAGEAL REFLUX DISEASE
     Route: 048
     Dates: start: 20030101, end: 20060101
  6. NEXIUM [Suspect]
     Route: 048
     Dates: start: 20120731
  7. OXYBUTYNIN CL ER [Concomitant]
     Indication: RENAL DISORDER
  8. NEXIUM [Suspect]
     Route: 048
     Dates: start: 20060101, end: 20120101
  9. OXYBUTYNIN CL ER [Concomitant]
     Indication: BLADDER DISORDER

REACTIONS (5)
  - BLOOD CHOLESTEROL INCREASED [None]
  - OFF LABEL USE [None]
  - GASTROOESOPHAGEAL REFLUX DISEASE [None]
  - DIABETES MELLITUS [None]
  - DRUG DOSE OMISSION [None]
